FAERS Safety Report 9767832 (Version 1)
Quarter: 2013Q4

REPORT INFORMATION
  Report Type: Spontaneous
  Country: FR (occurrence: FR)
  Receive Date: 20131217
  Receipt Date: 20131217
  Transmission Date: 20140711
  Serious: Yes (Life-Threatening)
  Sender: FDA-Public Use
  Company Number: FR-BAYER-2013-150727

PATIENT
  Age: 23 Year
  Sex: Male

DRUGS (3)
  1. GADOVIST [Suspect]
     Indication: NUCLEAR MAGNETIC RESONANCE IMAGING BRAIN
     Dosage: 5 ML, ONCE
     Route: 042
     Dates: start: 20120925, end: 20120925
  2. DIPRIVAN [Concomitant]
     Dosage: 1 DF, ONCE
     Route: 042
     Dates: start: 20120925
  3. LIORESAL [Concomitant]
     Dosage: 30 MG, QD
     Route: 048

REACTIONS (2)
  - Anaphylactic shock [Recovered/Resolved]
  - Skin test positive [Unknown]
